FAERS Safety Report 9131615 (Version 2)
Quarter: 2013Q1

REPORT INFORMATION
  Report Type: Spontaneous
  Country: CN (occurrence: CN)
  Receive Date: 20130301
  Receipt Date: 20130304
  Transmission Date: 20140127
  Serious: Yes (Other)
  Sender: FDA-Public Use
  Company Number: CN-JNJFOC-20130211011

PATIENT
  Age: 27 Year
  Sex: Female

DRUGS (2)
  1. TYLENOL COLD [Suspect]
     Indication: NASOPHARYNGITIS
     Route: 048
     Dates: start: 20130213, end: 20130213
  2. PENICILLIN [Concomitant]
     Indication: TONSILLITIS
     Route: 041
     Dates: start: 20130214, end: 20130214

REACTIONS (4)
  - Hypersensitivity [Recovering/Resolving]
  - Swelling face [Recovered/Resolved]
  - Rash generalised [Recovering/Resolving]
  - Pruritus [Recovering/Resolving]
